FAERS Safety Report 10190971 (Version 1)
Quarter: 2014Q2

REPORT INFORMATION
  Report Type: Spontaneous
  Country: US (occurrence: None)
  Receive Date: 20140521
  Receipt Date: 20140521
  Transmission Date: 20141212
  Serious: Yes (Hospitalization)
  Sender: FDA-Public Use
  Company Number: None

PATIENT
  Age: 66 Year
  Sex: Male
  Weight: 91.5 kg

DRUGS (1)
  1. AZITHROMYCIN [Suspect]
     Indication: HICCUPS
     Dosage: 250 MG UD PO
     Route: 048
     Dates: start: 20130429, end: 20130501

REACTIONS (8)
  - Nausea [None]
  - Vomiting [None]
  - Hiccups [None]
  - Abdominal pain [None]
  - Electrolyte imbalance [None]
  - Decreased appetite [None]
  - Hyponatraemia [None]
  - Hypokalaemia [None]
